FAERS Safety Report 21411529 (Version 1)
Quarter: 2022Q4

REPORT INFORMATION
  Report Type: Report from Study
  Country: BR (occurrence: BR)
  Receive Date: 20221005
  Receipt Date: 20221005
  Transmission Date: 20230113
  Serious: Yes (Other)
  Sender: FDA-Public Use
  Company Number: BR-NOVARTISPH-NVSC2022BR222397

PATIENT
  Age: 56 Year
  Sex: Female

DRUGS (2)
  1. COSENTYX [Suspect]
     Active Substance: SECUKINUMAB
     Indication: Psoriasis
     Dosage: UNK
     Route: 065
     Dates: start: 20191004
  2. COSENTYX [Suspect]
     Active Substance: SECUKINUMAB
     Indication: Psoriatic arthropathy

REACTIONS (15)
  - Cataract [Not Recovered/Not Resolved]
  - Visual impairment [Unknown]
  - Blood glucose increased [Unknown]
  - Pain [Unknown]
  - Pain in extremity [Recovering/Resolving]
  - Fibromyalgia [Unknown]
  - Back pain [Recovering/Resolving]
  - Spinal pain [Recovering/Resolving]
  - Arthralgia [Recovering/Resolving]
  - Limb discomfort [Unknown]
  - Abdominal discomfort [Unknown]
  - Stress [Unknown]
  - Insomnia [Unknown]
  - Malaise [Unknown]
  - Tremor [Recovering/Resolving]

NARRATIVE: CASE EVENT DATE: 20220925
